FAERS Safety Report 7827370 (Version 3)
Quarter: 2013Q2

REPORT INFORMATION
  Report Type: Spontaneous
  Country: US (occurrence: None)
  Receive Date: 20101130
  Receipt Date: 20121203
  Transmission Date: 20140414
  Serious: Yes (Hospitalization, Other)
  Sender: FDA-Public Use
  Company Number: 2010SP042538

PATIENT
  Age: 42 Year
  Sex: Female
  Weight: 99.34 kg

DRUGS (3)
  1. NUVARING [Suspect]
     Indication: CONTRACEPTION
     Dosage: 1 DF; QM; VAG
     Route: 067
     Dates: start: 200601, end: 200808
  2. AGGRENOX [Suspect]
     Indication: CEREBROVASCULAR ACCIDENT
  3. PHENTERMINE [Concomitant]

REACTIONS (11)
  - CEREBROVASCULAR ACCIDENT [None]
  - THROMBOSIS [None]
  - HEADACHE [None]
  - VARICOSE VEIN [None]
  - ANOGENITAL WARTS [None]
  - PAPILLOMA VIRAL INFECTION [None]
  - MENORRHAGIA [None]
  - VULVOVAGINITIS [None]
  - RHINITIS ALLERGIC [None]
  - HYPERLIPIDAEMIA [None]
  - DYSPHAGIA [None]
